FAERS Safety Report 16907428 (Version 3)
Quarter: 2019Q4

REPORT INFORMATION
  Report Type: Spontaneous
  Country: ES (occurrence: ES)
  Receive Date: 20191011
  Receipt Date: 20191104
  Transmission Date: 20200122
  Serious: Yes (Hospitalization)
  Sender: FDA-Public Use
  Company Number: ES-TAKEDA-2019TUS056394

PATIENT
  Age: 58 Year
  Sex: Female
  Weight: 71.8 kg

DRUGS (15)
  1. DARATUMUMAB [Suspect]
     Active Substance: DARATUMUMAB
     Indication: AMYLOIDOSIS
     Dosage: 1800 MILLIGRAM, Q2WEEKS
     Route: 058
     Dates: start: 20190222, end: 20190802
  2. LEVOFLOXACIN                       /01278903/ [Concomitant]
     Active Substance: LEVOFLOXACIN
     Indication: INFECTION
     Dosage: 500 MILLIGRAM, QD
     Route: 048
     Dates: start: 20190930
  3. VELCADE [Suspect]
     Active Substance: BORTEZOMIB
     Indication: AMYLOIDOSIS
     Dosage: 1.3 MILLIGRAM/SQ. METER, 1/WEEK
     Route: 058
     Dates: start: 20190222, end: 20190809
  4. CYCLOPHOSPHAMIDE. [Suspect]
     Active Substance: CYCLOPHOSPHAMIDE
     Indication: AMYLOIDOSIS
     Dosage: 300 MILLIGRAM/SQ. METER, 1/WEEK
     Route: 042
     Dates: start: 20190222, end: 20190809
  5. PREDNISONE                         /00044702/ [Concomitant]
     Active Substance: PREDNISONE
     Dosage: 10 MILLIGRAM
     Route: 048
     Dates: start: 20190915
  6. HEPARIN [Concomitant]
     Active Substance: HEPARIN SODIUM
     Indication: THROMBOSIS
     Dosage: UNK
     Route: 042
     Dates: start: 20190813
  7. GRANISETRON [Concomitant]
     Active Substance: GRANISETRON
     Indication: PROPHYLAXIS
     Dosage: UNK
     Route: 048
  8. FLUCONAZOLE. [Concomitant]
     Active Substance: FLUCONAZOLE
     Indication: INFECTION
     Dosage: 400 MILLIGRAM, QD
     Route: 048
     Dates: start: 20190930
  9. CHLORPROMAZINE. [Concomitant]
     Active Substance: CHLORPROMAZINE
     Dosage: 12.5 MILLIGRAM, BID
     Route: 048
     Dates: start: 20190902
  10. SULFAMETHOXAZOL                    /00025501/ [Concomitant]
     Active Substance: SULFAMETHOXAZOLE
     Indication: PROPHYLAXIS
     Dosage: UNK
     Route: 065
  11. GRANISETRON [Concomitant]
     Active Substance: GRANISETRON
     Indication: NAUSEA
     Dosage: UNK
     Route: 048
  12. TRIMETHOPRIM. [Concomitant]
     Active Substance: TRIMETHOPRIM
     Indication: INFECTION
     Dosage: 400 MILLIGRAM, 2/WEEK
     Route: 048
  13. DEXAMETHASONE. [Suspect]
     Active Substance: DEXAMETHASONE
     Indication: AMYLOIDOSIS
     Dosage: 20 MILLIGRAM, 1/WEEK
     Route: 048
     Dates: start: 20190222, end: 20190810
  14. PUNTUAL [Concomitant]
     Indication: CONSTIPATION
     Dosage: UNK
     Route: 048
     Dates: start: 20190902
  15. SULFAMETHOXAZOL                    /00025501/ [Concomitant]
     Active Substance: SULFAMETHOXAZOLE
     Indication: INFECTION
     Dosage: 80 MILLIGRAM, 2/WEEK
     Route: 048

REACTIONS (3)
  - Delayed engraftment [Recovered/Resolved]
  - Product use in unapproved indication [Unknown]
  - Off label use [Unknown]

NARRATIVE: CASE EVENT DATE: 20190222
